FAERS Safety Report 7369920-2 (Version None)
Quarter: 2011Q1

REPORT INFORMATION
  Report Type: 
  Country: None (occurrence: None)
  Receive Date: 20110323
  Receipt Date: 20110316
  Transmission Date: 20110831
  Serious: Yes (Hospitalization, Other)
  Sender: FDA-Public Use
  Company Number: FR-PFIZER INC-2011057389

PATIENT
  Age: 65 Year
  Sex: Female

DRUGS (9)
  1. LYRICA [Suspect]
     Dosage: 150 MG, 1X/DAY
     Route: 048
     Dates: end: 20101104
  2. NORSET [Suspect]
     Dosage: 15 MG, 1X/DAY
     Route: 048
     Dates: start: 20100601, end: 20101104
  3. SOLIAN [Suspect]
     Dosage: 0.5 DF, 1X/DAY
     Route: 048
     Dates: end: 20101104
  4. LEPTICUR [Suspect]
     Dosage: 10 MG, 1X/DAY
     Route: 048
     Dates: end: 20101104
  5. GLUCOPHAGE [Suspect]
     Dosage: 1000 MG, 3X/DAY
     Route: 048
     Dates: end: 20101104
  6. BI-PROFENID [Suspect]
     Dosage: 1 DF, UNK
     Route: 030
     Dates: start: 20101001, end: 20101001
  7. TERALITHE [Suspect]
     Dosage: 250 MG, 3X/DAY
     Route: 048
     Dates: start: 20100601, end: 20101104
  8. LEVOTHYROX [Concomitant]
     Dosage: 125 UG, 1X/DAY
     Route: 048
  9. SERESTA [Suspect]
     Dosage: 50 MG, 3X/DAY
     Route: 048
     Dates: end: 20101104

REACTIONS (7)
  - DEHYDRATION [None]
  - RENAL FAILURE ACUTE [None]
  - PAIN [None]
  - HYPERKALAEMIA [None]
  - TREMOR [None]
  - HYPOTENSION [None]
  - DIARRHOEA [None]
